FAERS Safety Report 5099834-2 (Version None)
Quarter: 2006Q3

REPORT INFORMATION
  Report Type: 
  Country: None (occurrence: None)
  Receive Date: 20060906
  Receipt Date: 20060906
  Transmission Date: 20061208
  Serious: Yes (Other)
  Sender: FDA-Public Use
  Company Number: None

PATIENT
  Age: 61 Year
  Sex: Female
  Weight: 106.5953 kg

DRUGS (8)
  1. PHENTERMINE [Suspect]
     Indication: WEIGHT DECREASED
     Dosage: 30MG   ONCE DAILY  ORALLY
     Route: 048
     Dates: start: 20050101, end: 20050630
  2. NITROGLYCERIN [Concomitant]
  3. AMBIEN [Concomitant]
  4. PROTONIX [Concomitant]
  5. IMDUR [Concomitant]
  6. EFFEXOR [Concomitant]
  7. LIPITOR [Concomitant]
  8. XANAX [Concomitant]

REACTIONS (3)
  - CHEST PAIN [None]
  - DYSPNOEA [None]
  - MUSCLE SPASMS [None]
